FAERS Safety Report 10328781 (Version 1)
Quarter: 2014Q3

REPORT INFORMATION
  Report Type: Spontaneous
  Country: GB (occurrence: GB)
  Receive Date: 20140721
  Receipt Date: 20140721
  Transmission Date: 20150326
  Serious: Yes (Other)
  Sender: FDA-Public Use
  Company Number: PHHY2014GB086194

PATIENT
  Age: 43 Year
  Sex: Male

DRUGS (8)
  1. LYRICA [Suspect]
     Active Substance: PREGABALIN
     Dosage: 150 MG, FOUR TIMES/DAY
     Route: 065
     Dates: start: 201302
  2. TRAMADOL [Suspect]
     Active Substance: TRAMADOL
     Indication: PAIN
     Route: 065
  3. PARACETAMOL [Concomitant]
     Active Substance: ACETAMINOPHEN
     Indication: PRODUCT USED FOR UNKNOWN INDICATION
     Route: 065
  4. COCODAMOL [Suspect]
     Active Substance: ACETAMINOPHEN\CODEINE PHOSPHATE
     Indication: PRODUCT USED FOR UNKNOWN INDICATION
     Route: 065
  5. LYRICA [Suspect]
     Active Substance: PREGABALIN
     Indication: ANXIETY
     Dosage: 300 MG, TWO TIMES A DAY
     Route: 065
  6. LYRICA [Suspect]
     Active Substance: PREGABALIN
     Dosage: 450 MG, FOUR TIMES/DAY
     Route: 065
     Dates: start: 20140701
  7. CODEINE PHOSPHATE [Suspect]
     Active Substance: CODEINE PHOSPHATE
     Indication: PAIN
     Route: 065
  8. LYRICA [Suspect]
     Active Substance: PREGABALIN
     Indication: PAIN
     Dosage: 25 MG, UNK
     Route: 065
     Dates: start: 201211

REACTIONS (25)
  - Fatigue [Unknown]
  - Bipolar I disorder [Unknown]
  - Drug ineffective [Unknown]
  - Mania [Unknown]
  - Somnolence [Unknown]
  - Chest pain [Unknown]
  - Influenza like illness [Unknown]
  - Disinhibition [Unknown]
  - Anxiety [Unknown]
  - Malaise [Unknown]
  - Drug withdrawal syndrome [Unknown]
  - Intentional overdose [Unknown]
  - Suicide attempt [Unknown]
  - Musculoskeletal pain [Unknown]
  - Drug dependence [Unknown]
  - Insomnia [Unknown]
  - Memory impairment [Unknown]
  - Feeling abnormal [Unknown]
  - Disturbance in attention [Unknown]
  - Euphoric mood [Unknown]
  - Gait disturbance [Unknown]
  - Nervousness [Unknown]
  - Disease progression [Unknown]
  - Asthenia [Unknown]
  - Hyperhidrosis [Unknown]

NARRATIVE: CASE EVENT DATE: 20140701
